FAERS Safety Report 19927213 (Version 1)
Quarter: 2021Q4

REPORT INFORMATION
  Report Type: Report from Study
  Country: JP (occurrence: JP)
  Receive Date: 20211006
  Receipt Date: 20211006
  Transmission Date: 20220303
  Serious: Yes (Other)
  Sender: FDA-Public Use
  Company Number: JP-TAKEDA-JP201944551

PATIENT
  Age: 57 Year
  Sex: Female
  Weight: 46.9 kg

DRUGS (7)
  1. VELAGLUCERASE ALFA [Suspect]
     Active Substance: VELAGLUCERASE ALFA
     Indication: Gaucher^s disease type I
     Dosage: 60 INTERNATIONAL UNIT/KILOGRAM, 1X/2WKS
     Route: 042
     Dates: start: 20150708
  2. IMIGLUCERASE [Concomitant]
     Active Substance: IMIGLUCERASE
     Indication: Gaucher^s disease type I
     Dosage: UNK
     Route: 065
     Dates: start: 19980625, end: 20150624
  3. URSODIOL [Concomitant]
     Active Substance: URSODIOL
     Indication: Product used for unknown indication
     Dosage: 300 MILLIGRAM, UNKNOWN
     Route: 048
     Dates: end: 20160719
  4. URSODIOL [Concomitant]
     Active Substance: URSODIOL
     Dosage: 600 MILLIGRAM, UNKNOWN
     Route: 048
     Dates: start: 20160720
  5. COPEGUS [Concomitant]
     Active Substance: RIBAVIRIN
     Indication: Product used for unknown indication
     Dosage: 600 MILLIGRAM, UNKNOWN
     Route: 048
     Dates: start: 20150801, end: 20150819
  6. COPEGUS [Concomitant]
     Active Substance: RIBAVIRIN
     Dosage: 200 MILLIGRAM, UNKNOWN
     Route: 048
     Dates: start: 20150820, end: 20151027
  7. SOVALDI [Concomitant]
     Active Substance: SOFOSBUVIR
     Indication: Product used for unknown indication
     Dosage: 400 MILLIGRAM, UNKNOWN
     Route: 048
     Dates: start: 20150801, end: 20151027

REACTIONS (3)
  - Portal hypertensive gastropathy [Recovering/Resolving]
  - Gastrooesophageal reflux disease [Recovering/Resolving]
  - Gastrooesophageal reflux disease [Recovering/Resolving]

NARRATIVE: CASE EVENT DATE: 20151125
